FAERS Safety Report 8251539-2 (Version None)
Quarter: 2012Q1

REPORT INFORMATION
  Report Type: 
  Country: None (occurrence: None)
  Receive Date: 20120322
  Receipt Date: 20120104
  Transmission Date: 20120608
  Serious: Yes (Hospitalization)
  Sender: FDA-Public Use
  Company Number: UTC-012933

PATIENT
  Age: 68 Year
  Sex: Female
  Weight: 79.5 kg

DRUGS (5)
  1. TYVASO [Suspect]
     Indication: PULMONARY ARTERIAL HYPERTENSION
     Dosage: 24 MCG (6 MCG, 4 IN 1 D) INHALATION
     Route: 055
     Dates: start: 20111112
  2. DIGOXIN [Concomitant]
  3. COUMADIN [Concomitant]
  4. ADCIRCA (TALADAFIL) [Concomitant]
  5. DIURETICS (DIURETICS) [Concomitant]

REACTIONS (2)
  - NAUSEA [None]
  - VOMITING [None]
